FAERS Safety Report 4621171-8 (Version None)
Quarter: 2005Q1

REPORT INFORMATION
  Report Type: 
  Country: None (occurrence: None)
  Receive Date: 20050328
  Receipt Date: 20050318
  Transmission Date: 20050727
  Serious: Yes (Other)
  Sender: FDA-Public Use
  Company Number: 200510742GDS

PATIENT
  Age: 75 Year
  Sex: Male

DRUGS (2)
  1. ACETAMINOPHEN [Suspect]
     Dosage: 5 G, TOTAL DAILY, ORAL
     Route: 048
  2. ACETYL SALICYLIC ACID USP BAT [Suspect]
     Dosage: 500 MG, TOTAL DAILY, ORAL
     Route: 048

REACTIONS (4)
  - CONDITION AGGRAVATED [None]
  - HEPATOCELLULAR DAMAGE [None]
  - OVERDOSE [None]
  - RENAL FAILURE [None]
